APPROVED DRUG PRODUCT: VANCOMYCIN HYDROCHLORIDE
Active Ingredient: VANCOMYCIN HYDROCHLORIDE
Strength: EQ 125MG BASE
Dosage Form/Route: CAPSULE;ORAL
Application: A090439 | Product #001 | TE Code: AB
Applicant: LUPIN LTD
Approved: Jan 28, 2015 | RLD: No | RS: No | Type: RX